FAERS Safety Report 17500082 (Version 1)
Quarter: 2020Q1

REPORT INFORMATION
  Report Type: Spontaneous
  Country: US (occurrence: US)
  Receive Date: 20200305
  Receipt Date: 20200305
  Transmission Date: 20200409
  Serious: No
  Sender: FDA-Public Use
  Company Number: US-TORRENT-00009046

PATIENT
  Age: 73 Year
  Sex: Female

DRUGS (5)
  1. LEVOTHYROXINE. [Suspect]
     Active Substance: LEVOTHYROXINE
     Indication: THYROID DISORDER
     Dates: end: 20190707
  2. METFORMIN [Suspect]
     Active Substance: METFORMIN HYDROCHLORIDE
     Indication: DIABETES MELLITUS
     Dosage: ONE AT NIGHT AND ONE MORNING
     Dates: end: 20190707
  3. PRAVASTATIN. [Suspect]
     Active Substance: PRAVASTATIN
     Indication: DYSLIPIDAEMIA
     Dates: end: 20190707
  4. PANTOPRAZOLE [Concomitant]
     Active Substance: PANTOPRAZOLE
     Indication: GASTROOESOPHAGEAL REFLUX DISEASE
     Dates: end: 20190707
  5. LOSARTAN AND HYDROCHLOROTHIAZIDE [Suspect]
     Active Substance: HYDROCHLOROTHIAZIDE\LOSARTAN POTASSIUM
     Indication: HYPERTENSION
     Dosage: 50/12.5 MG
     Dates: end: 20190707

REACTIONS (5)
  - Memory impairment [Recovered/Resolved]
  - Gait disturbance [Recovered/Resolved]
  - Hyperhidrosis [Recovered/Resolved]
  - Loss of personal independence in daily activities [Recovered/Resolved]
  - Dyspnoea [Recovered/Resolved]

NARRATIVE: CASE EVENT DATE: 201904
